FAERS Safety Report 5706768-6 (Version None)
Quarter: 2008Q2

REPORT INFORMATION
  Report Type: 
  Country: None (occurrence: None)
  Receive Date: 20080415
  Receipt Date: 20080415
  Transmission Date: 20081010
  Serious: Yes (Hospitalization)
  Sender: FDA-Public Use
  Company Number: None

PATIENT
  Age: 51 Year
  Sex: Male
  Weight: 103.4201 kg

DRUGS (6)
  1. FLUOROURACIL [Suspect]
     Indication: NEOPLASM MALIGNANT
     Dosage: 500 MG/M2
     Dates: start: 20080330, end: 20080404
  2. TAXOTERE [Suspect]
     Indication: NEOPLASM MALIGNANT
     Dosage: 25 MG/M2
     Dates: start: 20080331
  3. DEXAMETHASONE TAB [Concomitant]
  4. PROCHLOROPERAZINE [Concomitant]
  5. NYSTATIN [Concomitant]
  6. MAGIC MOUTHWASH [Concomitant]

REACTIONS (5)
  - DYSPHAGIA [None]
  - MUCOSAL INFLAMMATION [None]
  - ODYNOPHAGIA [None]
  - ORAL CANDIDIASIS [None]
  - STOMATITIS [None]
